FAERS Safety Report 6212649-4 (Version None)
Quarter: 2009Q2

REPORT INFORMATION
  Report Type: 
  Country: None (occurrence: None)
  Receive Date: 20090603
  Receipt Date: 20090526
  Transmission Date: 20091009
  Serious: Yes (Hospitalization, Other)
  Sender: FDA-Public Use
  Company Number: US-AMGEN-QUU348589

PATIENT
  Sex: Male

DRUGS (1)
  1. ENBREL [Suspect]
     Indication: PSORIASIS
     Route: 058
     Dates: start: 20050721

REACTIONS (10)
  - ABDOMINAL PAIN [None]
  - CONSTIPATION [None]
  - DRUG INEFFECTIVE [None]
  - GASTRIC ULCER HAEMORRHAGE [None]
  - HAEMATOCHEZIA [None]
  - INJECTION SITE PAIN [None]
  - INTERVERTEBRAL DISC PROTRUSION [None]
  - PROSTATECTOMY [None]
  - PSORIASIS [None]
  - STRESS [None]
